FAERS Safety Report 9183914 (Version 1)
Quarter: 2012Q4

REPORT INFORMATION
  Report Type: 
  Country: US (occurrence: US)
  Receive Date: 20121030
  Receipt Date: 20121030
  Transmission Date: 20130627
  Serious: Yes (Other)
  Sender: FDA-Public Use
  Company Number: US-ELI_LILLY_AND_COMPANY-US201210005896

PATIENT
  Sex: Female

DRUGS (5)
  1. HUMULIN NPH [Suspect]
     Indication: TYPE 1 DIABETES MELLITUS
     Dosage: 20 u, each morning
     Dates: start: 1982
  2. HUMULIN NPH [Suspect]
     Dosage: 10 u, each evening
     Dates: start: 1982
  3. HUMULIN REGULAR [Suspect]
     Indication: TYPE 1 DIABETES MELLITUS
     Dosage: UNK, prn
     Dates: start: 1982, end: 2000
  4. HUMALOG LISPRO [Suspect]
     Indication: TYPE 1 DIABETES MELLITUS
     Dosage: UNK, prn
     Dates: start: 2000
  5. ASPIRIN [Concomitant]
     Dosage: 325 mg, unknown

REACTIONS (5)
  - Coronary artery occlusion [Unknown]
  - Retinopathy [Not Recovered/Not Resolved]
  - Glaucoma [Not Recovered/Not Resolved]
  - Visual impairment [Not Recovered/Not Resolved]
  - Stress [Not Recovered/Not Resolved]
